FAERS Safety Report 9362883 (Version 2)
Quarter: 2013Q3

REPORT INFORMATION
  Report Type: Report from Study
  Country: BR (occurrence: BR)
  Receive Date: 20130624
  Receipt Date: 20130730
  Transmission Date: 20140515
  Serious: Yes (Hospitalization, Other)
  Sender: FDA-Public Use
  Company Number: BR-ROCHE-1239598

PATIENT
  Sex: Female
  Weight: 59 kg

DRUGS (6)
  1. INTERFERON ALFA-2A [Suspect]
     Indication: PRODUCT USED FOR UNKNOWN INDICATION
     Route: 065
     Dates: start: 2006, end: 2007
  2. RIBAVIRIN [Concomitant]
  3. ATENOLOL [Concomitant]
     Indication: HYPERTENSION
  4. LOSARTAN [Concomitant]
     Indication: HYPERTENSION
  5. HYDROCHLOROTHIAZIDE [Concomitant]
     Indication: HYPERTENSION
  6. BUSCOPAN [Concomitant]

REACTIONS (5)
  - Intestinal polyp [Recovered/Resolved]
  - Hepatitis C [Not Recovered/Not Resolved]
  - Haematochezia [Recovered/Resolved]
  - Malaise [Recovered/Resolved]
  - Abdominal pain [Not Recovered/Not Resolved]
